FAERS Safety Report 8820601 (Version 1)
Quarter: 2012Q4

REPORT INFORMATION
  Report Type: 
  Country: DE (occurrence: DE)
  Receive Date: 20121002
  Receipt Date: 20121002
  Transmission Date: 20130627
  Serious: Yes (Hospitalization)
  Sender: FDA-Public Use
  Company Number: DE-SANOFI-AVENTIS-2012SA071878

PATIENT
  Age: 78 Year
  Sex: Female
  Weight: 82 kg

DRUGS (5)
  1. MINOCYCLINE HYDROCHLORIDE [Suspect]
     Indication: LYME BORRELIOSIS
     Dosage: daily dose: 200 Mg millgram(s) every Days
     Route: 048
     Dates: start: 20120201, end: 20120214
  2. QUENSYL [Suspect]
     Indication: LYME BORRELIOSIS
     Dosage: daily dose: 400 Mg millgram(s) every Days
     Route: 048
     Dates: start: 20120201, end: 20120214
  3. VITAMIN B KOMPLEX [Concomitant]
  4. AZATHIOPRINE [Concomitant]
     Dosage: daily dose: 25 Mg millgram(s) every Days
  5. ONBREZ BREEZHALER [Concomitant]
     Dosage: daily dose: 300 ?g microgram(s) every Days

REACTIONS (3)
  - Pustular psoriasis [Recovering/Resolving]
  - Transaminases increased [Recovering/Resolving]
  - Rash [Recovering/Resolving]
